FAERS Safety Report 6075416-0 (Version None)
Quarter: 2009Q1

REPORT INFORMATION
  Report Type: 
  Country: None (occurrence: None)
  Receive Date: 20090209
  Receipt Date: 20090202
  Transmission Date: 20090719
  Serious: Yes (Other)
  Sender: FDA-Public Use
  Company Number: ALA_00242_2009

PATIENT
  Sex: Male
  Weight: 80.9217 kg

DRUGS (11)
  1. REGLAN [Suspect]
     Indication: DRUG USE FOR UNKNOWN INDICATION
     Dosage: (DF)
  2. XALATAN [Suspect]
     Indication: GLAUCOMA
     Dosage: (1 GTT QD OPHTHALMIC)
     Route: 047
     Dates: start: 19980101
  3. ALL OTHER THERAPEUTIC PRODUCTS (ALL OTHER THERAPEUTIC PRODUCTS) [Suspect]
     Dosage: (DF)
     Dates: start: 20040101
  4. AMARYL [Concomitant]
  5. CALCITRIOL [Concomitant]
  6. SPIRONOLACTONE [Concomitant]
  7. FOLATE [Concomitant]
  8. ZOLPIDEM TARTRATE [Concomitant]
  9. PLAVIX [Concomitant]
  10. BETOPTIC [Concomitant]
  11. GLIMEPIRIDE [Concomitant]

REACTIONS (8)
  - ARRHYTHMIA [None]
  - CARDIAC FAILURE CONGESTIVE [None]
  - CORONARY ARTERY OCCLUSION [None]
  - DIZZINESS [None]
  - INTRAOCULAR PRESSURE INCREASED [None]
  - MALAISE [None]
  - NAUSEA [None]
  - SWELLING [None]
